FAERS Safety Report 5494445-9 (Version None)
Quarter: 2007Q4

REPORT INFORMATION
  Report Type: 
  Country: None (occurrence: None)
  Receive Date: 20071022
  Receipt Date: 20071022
  Transmission Date: 20080405
  Serious: Yes (Life-Threatening, Disabling, Other)
  Sender: FDA-Public Use
  Company Number: None

PATIENT
  Sex: Female
  Weight: 61.6892 kg

DRUGS (1)
  1. CHANTIX [Suspect]
     Indication: SMOKING CESSATION THERAPY
     Dosage: 1 MG 2 TIMES A DAY PO
     Route: 048
     Dates: start: 20070914, end: 20071017

REACTIONS (4)
  - AGGRESSION [None]
  - ANGER [None]
  - CRYING [None]
  - SUICIDAL IDEATION [None]
